FAERS Safety Report 4303408-8 (Version None)
Quarter: 2004Q1

REPORT INFORMATION
  Report Type: 
  Country: None (occurrence: None)
  Receive Date: 20040224
  Receipt Date: 20040115
  Transmission Date: 20041129
  Serious: Yes (Hospitalization)
  Sender: FDA-Public Use
  Company Number: WAES 0401USA01175

PATIENT
  Age: 63 Year
  Sex: Female
  Weight: 81 kg

DRUGS (16)
  1. ASPIRIN [Concomitant]
     Indication: CORONARY ARTERY DISEASE
     Route: 048
  2. LIPITOR [Concomitant]
  3. CATAPRES [Concomitant]
     Indication: HYPERTENSION
     Route: 048
  4. CATAPRES [Concomitant]
     Route: 048
  5. ZETIA [Suspect]
     Indication: BLOOD CHOLESTEROL INCREASED
     Route: 048
     Dates: start: 20031101, end: 20040101
  6. ALLEGRA [Concomitant]
  7. HYDRODIURIL [Concomitant]
     Route: 048
  8. IBUPROFEN [Concomitant]
  9. TOPROL-XL [Concomitant]
     Indication: CORONARY ARTERY DISEASE
     Route: 048
     Dates: start: 20010101
  10. TOPROL-XL [Concomitant]
     Route: 048
  11. TOPROL-XL [Concomitant]
     Indication: HYPERTENSION
     Route: 048
     Dates: start: 20010101
  12. TOPROL-XL [Concomitant]
     Route: 048
  13. CENTRUM [Concomitant]
     Indication: PROPHYLAXIS
     Route: 048
  14. NITROGLYCERIN [Concomitant]
     Route: 060
  15. ZOLOFT [Concomitant]
     Indication: DEPRESSION
     Route: 048
     Dates: start: 20000101
  16. DIOVAN [Concomitant]
     Route: 048
     Dates: start: 20030101

REACTIONS (3)
  - CHOLESTASIS [None]
  - HEPATITIS [None]
  - RECTAL HAEMORRHAGE [None]
